FAERS Safety Report 11754814 (Version 6)
Quarter: 2016Q1

REPORT INFORMATION
  Report Type: Spontaneous
  Country: JP (occurrence: JP)
  Receive Date: 20151119
  Receipt Date: 20160223
  Transmission Date: 20160525
  Serious: Yes (Disabling, Other)
  Sender: FDA-Public Use
  Company Number: JP-009507513-1511JPN009719

PATIENT
  Age: 82 Year
  Sex: Female
  Weight: 60.7 kg

DRUGS (21)
  1. PREDNISOLONE. [Concomitant]
     Active Substance: PREDNISOLONE
     Dosage: 2 X TA (TWO TABLETS AT NOON, ONE TABLET IN THE EVENING)
     Route: 048
     Dates: start: 20151118, end: 20151118
  2. OLMETEC [Concomitant]
     Active Substance: OLMESARTAN MEDOXOMIL
     Dosage: DIVIDED DOSE, FREQUENCY UNKNOWN, TOTAL DAILY DOSE: 20 MG
     Route: 048
  3. ADETPHOS [Concomitant]
     Active Substance: ADENOSINE TRIPHOSPHATE
     Dosage: 3 X N, 1 G, TID
     Route: 048
     Dates: start: 20151114
  4. SUNRYTHM [Concomitant]
     Active Substance: PILSICAINIDE HYDROCHLORIDE
     Dosage: 2 X M.A.; TOTAL DAILY DOSE 2 DOSAGE FORM
     Route: 048
  5. PREDNISOLONE. [Concomitant]
     Active Substance: PREDNISOLONE
     Dosage: 3 X N (TWO TABLETS IN THE MORNING, ONE TABLET AT NOON, ONE TABLET IN THE EVENING)
     Route: 048
     Dates: start: 20151119, end: 20151120
  6. ISOBIDE [Concomitant]
     Active Substance: ISOSORBIDE
     Dosage: 3 X N, 1 DF, TID
     Route: 048
     Dates: start: 20051114
  7. TAGAMET [Concomitant]
     Active Substance: CIMETIDINE
     Dosage: 1 X A; TOTAL DAILY DOSE 400 MG
     Route: 048
  8. BROTIZOLAM [Concomitant]
     Active Substance: BROTIZOLAM
     Dosage: 1 X VS; TOTAL DAILY DOSE 2 DOSAGE FORM
     Route: 048
  9. SOVALDI [Suspect]
     Active Substance: SOFOSBUVIR
     Indication: CHRONIC HEPATITIS C
     Dosage: 400 MG, QD
     Route: 048
     Dates: start: 20151023, end: 20151126
  10. MOHRUS [Concomitant]
     Active Substance: KETOPROFEN
     Dosage: DIVIDED DOSE, FREQUENCY UNKNOWN, TOTAL DAILY DOSE: 1 DOSAGE FORM
     Route: 062
  11. PREDNISOLONE. [Concomitant]
     Active Substance: PREDNISOLONE
     Dosage: DIVIDED DOSE, FREQUENCY UNKNOWN, TOTAL DAILY DOSE: 0.5 DOSAGE FORM
     Route: 048
  12. CILNIDIPINE [Concomitant]
     Active Substance: CILNIDIPINE
     Dosage: 1 X M; TOTAL DAILY DOSE 10 MG
     Route: 048
  13. BOFU-TSUSHO-SAN [Concomitant]
     Active Substance: HERBALS
     Dosage: 3 X Z; TOTAL DAILY DOSE 7.5 G
     Route: 048
  14. REBETOL [Suspect]
     Active Substance: RIBAVIRIN
     Dosage: 200 MG, BID
     Route: 048
     Dates: start: 20151119, end: 20151126
  15. NEOPHAGEN C TABLETS [Concomitant]
     Dosage: 3 X N; TOTAL DAILY DOSE 3 DOSAGE FORM
     Route: 048
  16. CILNIDIPINE [Concomitant]
     Active Substance: CILNIDIPINE
     Dosage: 1 X M, 10 MG, QD
     Route: 048
  17. PURSENNID (SENNOSIDES) [Concomitant]
     Dosage: 1 X VS; TOTAL DAILY DOSE 12 MG
     Route: 048
  18. REBETOL [Suspect]
     Active Substance: RIBAVIRIN
     Indication: CHRONIC HEPATITIS C
     Dosage: 400 MG, BID
     Route: 048
     Dates: start: 20151023, end: 20151118
  19. INTEBAN [Concomitant]
     Active Substance: INDOMETHACIN
     Dosage: DIVIDED DOSE, FREQUENCY UNKNOWN, TOTAL DAILY DOSE: 50 MG
     Route: 054
  20. URSODIOL. [Concomitant]
     Active Substance: URSODIOL
     Dosage: 3 X N; TOTAL DAILY DOSE 3 DOSAGE FORM
     Route: 048
  21. MECOBALAMIN [Concomitant]
     Active Substance: METHYLCOBALAMIN
     Dosage: 3 X N, 1 DF, TID
     Route: 048
     Dates: start: 20151112

REACTIONS (5)
  - Deafness [Recovered/Resolved with Sequelae]
  - Sudden hearing loss [Not Recovered/Not Resolved]
  - Anaemia [Recovered/Resolved]
  - Dizziness [Recovering/Resolving]
  - Deafness [Recovering/Resolving]

NARRATIVE: CASE EVENT DATE: 20151110
